FAERS Safety Report 21664365 (Version 1)
Quarter: 2022Q4

REPORT INFORMATION
  Report Type: Spontaneous
  Country: US (occurrence: US)
  Receive Date: 20221130
  Receipt Date: 20221130
  Transmission Date: 20230113
  Serious: No
  Sender: FDA-Public Use
  Company Number: US-THERAPEUTICSMD-2022TMD00088

PATIENT
  Age: 43 Year
  Sex: Female
  Weight: 48.526 kg

DRUGS (6)
  1. BIJUVA [Suspect]
     Active Substance: ESTRADIOL\PROGESTERONE
     Indication: Menopausal symptoms
     Dosage: 1 CAPSULES, 1X/DAY
     Route: 048
  2. BIJUVA [Suspect]
     Active Substance: ESTRADIOL\PROGESTERONE
     Dosage: 1 CAPSULES, 1X/DAY
     Route: 048
     Dates: start: 202110
  3. TOPAMAX [Concomitant]
     Active Substance: TOPIRAMATE
  4. AMBIEN [Concomitant]
     Active Substance: ZOLPIDEM TARTRATE
  5. VITAMIN D [Concomitant]
     Active Substance: VITAMIN D NOS
  6. VALIUM [Concomitant]
     Active Substance: DIAZEPAM
     Dosage: OCCASIONALLY

REACTIONS (4)
  - Vulvovaginal burning sensation [Recovered/Resolved]
  - Nephrolithiasis [Recovered/Resolved]
  - Feeling abnormal [Not Recovered/Not Resolved]
  - Pelvic pain [Recovering/Resolving]

NARRATIVE: CASE EVENT DATE: 20220119
